FAERS Safety Report 5005881-9 (Version None)
Quarter: 2006Q2

REPORT INFORMATION
  Report Type: 
  Country: None (occurrence: None)
  Receive Date: 20060515
  Receipt Date: 20050613
  Transmission Date: 20061013
  Serious: No
  Sender: FDA-Public Use
  Company Number: 31599

PATIENT
  Sex: Female

DRUGS (1)
  1. TRIMETHOPRIM SULFATE/POLYMYXIN B SULFATE SOLUTION [Suspect]

REACTIONS (3)
  - CONDITION AGGRAVATED [None]
  - DOCUMENTED HYPERSENSITIVITY TO ADMINISTERED DRUG [None]
  - EYE INFLAMMATION [None]
